FAERS Safety Report 7521940-0 (Version None)
Quarter: 2011Q2

REPORT INFORMATION
  Report Type: 
  Country: None (occurrence: None)
  Receive Date: 20110603
  Receipt Date: 20110520
  Transmission Date: 20111010
  Serious: Yes (Other)
  Sender: FDA-Public Use
  Company Number: US-ELI_LILLY_AND_COMPANY-US201003001860

PATIENT
  Sex: Female
  Weight: 68.934 kg

DRUGS (5)
  1. METOPROLOL TARTRATE [Concomitant]
  2. SYNTHROID [Concomitant]
  3. AZOR                               /06230801/ [Concomitant]
  4. FORTEO [Suspect]
     Indication: OSTEOPOROSIS
     Dosage: 20 UG, QD
     Route: 058
     Dates: start: 20100118
  5. FORTEO [Suspect]
     Dosage: 20 UG, QD
     Route: 058

REACTIONS (3)
  - FALL [None]
  - COLON CANCER [None]
  - DIZZINESS [None]
